FAERS Safety Report 10088945 (Version 1)
Quarter: 2014Q2

REPORT INFORMATION
  Report Type: Spontaneous
  Country: US (occurrence: None)
  Receive Date: 20140418
  Receipt Date: 20140418
  Transmission Date: 20141212
  Serious: Yes (Life-Threatening)
  Sender: FDA-Public Use
  Company Number: None

PATIENT
  Age: 71 Year
  Sex: Female
  Weight: 112.49 kg

DRUGS (11)
  1. TEKTURNA [Suspect]
     Indication: HYPERTENSION
     Dosage: BY MOUTH
     Route: 048
     Dates: start: 20121128, end: 20140301
  2. LEVOTHYROID [Concomitant]
  3. PLAVIX [Concomitant]
  4. HYDROCHLOROTHIAZIDE [Concomitant]
  5. POTASSIUM [Concomitant]
  6. ALBUTEROL INHALER [Concomitant]
  7. TYLENOL [Concomitant]
  8. ADVIL [Concomitant]
  9. OMEGA 3-D [Concomitant]
  10. MULTIVITAMIN [Concomitant]
  11. VITAMIN B [Concomitant]

REACTIONS (8)
  - Peripheral swelling [None]
  - Arrhythmia [None]
  - Heart rate irregular [None]
  - Ventricular extrasystoles [None]
  - Supraventricular extrasystoles [None]
  - Blood glucose increased [None]
  - Blood pressure increased [None]
  - Swelling [None]
